FAERS Safety Report 8930509 (Version 1)
Quarter: 2012Q4

REPORT INFORMATION
  Report Type: 
  Country: MX (occurrence: MX)
  Receive Date: 20121128
  Receipt Date: 20121128
  Transmission Date: 20130627
  Serious: Yes (Death, Hospitalization, Other)
  Sender: FDA-Public Use
  Company Number: PHHY2012MX108316

PATIENT
  Age: 86 Year
  Sex: Male

DRUGS (4)
  1. STALEVO [Suspect]
     Indication: PARKINSON^S DISEASE
     Dosage: 1 DF, (200/50/12.5)
     Route: 048
     Dates: start: 20120403
  2. TAFIL [Concomitant]
     Indication: ANXIETY
     Dosage: 0.25 DF, daily
     Dates: start: 2007
  3. SILNUX [Concomitant]
     Indication: SLEEP DISORDER
     Dosage: 1 DF, daily
     Dates: start: 2004
  4. ALPRAZOLAM [Concomitant]
     Indication: ANXIETY
     Dosage: UNK
     Dates: start: 2007

REACTIONS (5)
  - Respiratory arrest [Fatal]
  - Dyspnoea [Fatal]
  - Pneumonia [Unknown]
  - Increased upper airway secretion [Unknown]
  - Cough [Unknown]
